FAERS Safety Report 9249709 (Version 2)
Quarter: 2013Q3

REPORT INFORMATION
  Report Type: Spontaneous
  Country: US (occurrence: US)
  Receive Date: 20130423
  Receipt Date: 20130717
  Transmission Date: 20140515
  Serious: Yes (Other)
  Sender: FDA-Public Use
  Company Number: US-BRISTOL-MYERS SQUIBB COMPANY-17250242

PATIENT
  Age: 61 Year
  Sex: Female
  Weight: 117.91 kg

DRUGS (8)
  1. YERVOY [Suspect]
     Indication: METASTATIC MALIGNANT MELANOMA
     Dosage: SECOND INFUSION ON 19DEC2012?NO OF INF:2
     Dates: start: 20121128
  2. METFORMIN HCL [Concomitant]
     Indication: DIABETES MELLITUS
  3. INSULIN [Concomitant]
  4. PLAVIX [Concomitant]
     Indication: CORONARY ARTERIAL STENT INSERTION
  5. ASPIRIN [Concomitant]
  6. DIOVAN [Concomitant]
  7. SIMVASTATIN [Concomitant]
  8. FERREX [Concomitant]
     Dosage: 1DF = 28

REACTIONS (3)
  - Infusion related reaction [Unknown]
  - Pruritus generalised [Unknown]
  - Rash [Unknown]
